FAERS Safety Report 5723679-0 (Version None)
Quarter: 2008Q2

REPORT INFORMATION
  Report Type: 
  Country: None (occurrence: None)
  Receive Date: 20080429
  Receipt Date: 20080429
  Transmission Date: 20081010
  Serious: Yes (Hospitalization)
  Sender: FDA-Public Use
  Company Number: None

PATIENT
  Age: 57 Year
  Sex: Male
  Weight: 75 kg

DRUGS (2)
  1. KETOROLAC TROMETHAMINE [Suspect]
     Indication: PAIN
     Dosage: 30MG ONCE IM
     Route: 030
     Dates: start: 20080307, end: 20080307
  2. TRAMADOL HCL [Suspect]
     Dosage: 100MG ONCE PO
     Route: 048
     Dates: start: 20080307, end: 20080307

REACTIONS (2)
  - BRADYCARDIA [None]
  - SYNCOPE [None]
